FAERS Safety Report 18295345 (Version 1)
Quarter: 2020Q3

REPORT INFORMATION
  Report Type: Spontaneous
  Country: CA (occurrence: CA)
  Receive Date: 20200922
  Receipt Date: 20200922
  Transmission Date: 20201103
  Serious: Yes (Hospitalization)
  Sender: FDA-Public Use
  Company Number: CA-TEVA-2020-CA-1829993

PATIENT
  Age: 16 Year
  Sex: Male
  Weight: 81 kg

DRUGS (11)
  1. ETOPOSIDE. [Suspect]
     Active Substance: ETOPOSIDE
     Indication: EWING^S SARCOMA
     Route: 065
  2. IFOSFAMIDE FOR INJECTION, USP [Suspect]
     Active Substance: IFOSFAMIDE
     Indication: EWING^S SARCOMA
  3. DIMENHYDRINATE. [Concomitant]
     Active Substance: DIMENHYDRINATE
  4. LAX?A?DAY [Concomitant]
     Active Substance: POLYETHYLENE GLYCOL 3350
  5. ONDANSETRON [Concomitant]
     Active Substance: ONDANSETRON
  6. LYRICA [Concomitant]
     Active Substance: PREGABALIN
  7. MESNA. [Suspect]
     Active Substance: MESNA
     Indication: EWING^S SARCOMA
     Route: 065
  8. FILGRASTIM [Concomitant]
     Active Substance: FILGRASTIM
  9. TYLENOL [Concomitant]
     Active Substance: ACETAMINOPHEN
  10. DEXAMETHASONE. [Concomitant]
     Active Substance: DEXAMETHASONE
     Route: 065
  11. RIVOTRIL [Concomitant]
     Active Substance: CLONAZEPAM

REACTIONS (1)
  - Febrile neutropenia [Recovered/Resolved]
